FAERS Safety Report 8422695 (Version 2)
Quarter: 2012Q4

REPORT INFORMATION
  Report Type: 
  Country: US (occurrence: US)
  Receive Date: 20120223
  Receipt Date: 20121005
  Transmission Date: 20130627
  Serious: Yes (Hospitalization)
  Sender: FDA-Public Use
  Company Number: US-US-EMD SERONO, INC.-7113912

PATIENT
  Age: 45 None
  Sex: Male

DRUGS (7)
  1. REBIF [Suspect]
     Indication: MULTIPLE SCLEROSIS
     Route: 058
     Dates: start: 20100212
  2. ZOLOFT [Concomitant]
     Indication: HEADACHE
  3. ZOLOFT [Concomitant]
     Indication: DEPRESSION
  4. KLONOPIN [Concomitant]
     Indication: HEADACHE
  5. KLONOPIN [Concomitant]
     Indication: ANXIETY
  6. NEXIUM [Concomitant]
     Indication: GASTROOESOPHAGEAL REFLUX DISEASE
  7. TOPIRAMATE [Concomitant]
     Indication: MIGRAINE

REACTIONS (5)
  - Spinal fracture [Recovering/Resolving]
  - Fall [Recovered/Resolved]
  - Blood glucose increased [Unknown]
  - Hypotension [Unknown]
  - Headache [Unknown]
